FAERS Safety Report 7101281-6 (Version None)
Quarter: 2010Q4

REPORT INFORMATION
  Report Type: 
  Country: None (occurrence: None)
  Receive Date: 20101115
  Receipt Date: 20101104
  Transmission Date: 20110411
  Serious: Yes (Hospitalization)
  Sender: FDA-Public Use
  Company Number: SI-JNJFOC-20101104114

PATIENT
  Sex: Female
  Weight: 50 kg

DRUGS (7)
  1. REMICADE [Suspect]
     Indication: SERONEGATIVE ARTHRITIS
     Dosage: RECEIVED 4 INFUSIONS
     Route: 042
  2. ROCALTROL [Concomitant]
     Route: 048
  3. ARAVA [Concomitant]
     Route: 048
  4. MEDROL [Concomitant]
     Route: 048
  5. METHOTREXATE [Concomitant]
     Route: 048
  6. NAKLOFEN DUO [Concomitant]
     Indication: SERONEGATIVE ARTHRITIS
     Route: 048
  7. FOSAMAX [Concomitant]
     Indication: OSTEOPOROSIS
     Route: 048

REACTIONS (1)
  - CHEST X-RAY ABNORMAL [None]
